FAERS Safety Report 17022615 (Version 1)
Quarter: 2019Q4

REPORT INFORMATION
  Report Type: Spontaneous
  Country: US (occurrence: US)
  Receive Date: 20191112
  Receipt Date: 20191112
  Transmission Date: 20200122
  Serious: No
  Sender: FDA-Public Use
  Company Number: US-TEVA-2019-US-1133889

PATIENT
  Sex: Female

DRUGS (4)
  1. PROPANOL MYLAN [Concomitant]
  2. CEFTIN [Concomitant]
     Active Substance: CEFUROXIME AXETIL
  3. FAMOTIDINE. [Suspect]
     Active Substance: FAMOTIDINE
     Indication: MASTOCYTOSIS
     Route: 065
     Dates: start: 201909
  4. TUMS [Concomitant]
     Active Substance: CALCIUM CARBONATE

REACTIONS (4)
  - Abdominal pain [Unknown]
  - Constipation [Unknown]
  - Blood pressure increased [Unknown]
  - Tinnitus [Unknown]

NARRATIVE: CASE EVENT DATE: 201909
